FAERS Safety Report 4551033-6 (Version None)
Quarter: 2005Q1

REPORT INFORMATION
  Report Type: 
  Country: None (occurrence: None)
  Receive Date: 20050113
  Receipt Date: 20040510
  Transmission Date: 20050727
  Serious: No
  Sender: FDA-Public Use
  Company Number: US-BRISTOL-MYERS SQUIBB COMPANY-12583795

PATIENT
  Sex: Female
  Weight: 77 kg

DRUGS (7)
  1. DESYREL [Suspect]
     Indication: PAIN MANAGEMENT
     Dosage: DOSE VALUE:  1 AND 1/4 TABLET OR 1 AND 1/2 TABLET.
     Route: 048
     Dates: start: 20030101
  2. LIDODERM PATCH [Concomitant]
  3. SYNTHROID [Concomitant]
  4. MULTI-VITAMIN [Concomitant]
  5. EVENING PRIMROSE OIL [Concomitant]
  6. BIOTIN [Concomitant]
  7. GLUCOSAMINE [Concomitant]

REACTIONS (1)
  - ALOPECIA [None]
